FAERS Safety Report 23626025 (Version 1)
Quarter: 2024Q1

REPORT INFORMATION
  Report Type: Other
  Country: GB (occurrence: None)
  Receive Date: 20240313
  Receipt Date: 20240313
  Transmission Date: 20240410
  Serious: Yes (Other)
  Sender: FDA-Public Use
  Company Number: GB-ROCHE-2711017

PATIENT
  Sex: Female

DRUGS (11)
  1. TOCILIZUMAB [Suspect]
     Active Substance: TOCILIZUMAB
     Indication: Takayasu^s arteritis
     Route: 058
     Dates: start: 20180709
  2. TOCILIZUMAB [Suspect]
     Active Substance: TOCILIZUMAB
     Indication: Vasculitis
     Route: 058
     Dates: start: 201805
  3. IRBESARTAN [Concomitant]
     Active Substance: IRBESARTAN
  4. DOXAZOSIN [Concomitant]
     Active Substance: DOXAZOSIN MESYLATE
  5. ATORVASTATIN [Concomitant]
     Active Substance: ATORVASTATIN
  6. CLOPIDOGREL [Concomitant]
     Active Substance: CLOPIDOGREL BISULFATE
  7. AMITRIPTYLINE [Concomitant]
     Active Substance: AMITRIPTYLINE
  8. OMEPRAZOLE [Concomitant]
     Active Substance: OMEPRAZOLE
  9. PREDNISOLONE [Concomitant]
     Active Substance: PREDNISOLONE
  10. CALCIUM CARBONATE\CHOLECALCIFEROL [Concomitant]
     Active Substance: CALCIUM CARBONATE\CHOLECALCIFEROL
  11. AMOXICILLIN [Concomitant]
     Active Substance: AMOXICILLIN

REACTIONS (13)
  - Wound infection [Unknown]
  - Lower respiratory tract infection [Unknown]
  - Infection [Unknown]
  - Malaise [Unknown]
  - Skin ulcer [Unknown]
  - Eye disorder [Unknown]
  - Condition aggravated [Unknown]
  - Polymyalgia rheumatica [Unknown]
  - Immunodeficiency [Unknown]
  - Pneumonia [Unknown]
  - COVID-19 [Not Recovered/Not Resolved]
  - Lower respiratory tract infection [Not Recovered/Not Resolved]
  - Cellulitis [Not Recovered/Not Resolved]
